FAERS Safety Report 6873295-2 (Version None)
Quarter: 2010Q3

REPORT INFORMATION
  Report Type: 
  Country: None (occurrence: None)
  Receive Date: 20100723
  Receipt Date: 20090401
  Transmission Date: 20110219
  Serious: No
  Sender: FDA-Public Use
  Company Number: US-PFIZER INC-2008154354

PATIENT
  Age: 35 Year
  Sex: Male
  Weight: 72.574 kg

DRUGS (4)
  1. CHANTIX [Suspect]
     Indication: SMOKING CESSATION THERAPY
     Dosage: 0.5 MG, 2X/DAY
     Dates: start: 20081209, end: 20081215
  2. ZYPREXA [Concomitant]
     Dosage: UNK
  3. PALIPERIDONE [Concomitant]
     Dosage: UNK
  4. PREVACID [Concomitant]
     Indication: BLOOD CHOLESTEROL ABNORMAL
     Dosage: UNK

REACTIONS (4)
  - IMPAIRED DRIVING ABILITY [None]
  - INSOMNIA [None]
  - NAUSEA [None]
  - THINKING ABNORMAL [None]
